FAERS Safety Report 9851152 (Version 1)
Quarter: 2014Q1

REPORT INFORMATION
  Report Type: Spontaneous
  Country: US (occurrence: US)
  Receive Date: 20140128
  Receipt Date: 20140128
  Transmission Date: 20141002
  Serious: Yes (Hospitalization, Other)
  Sender: FDA-Public Use
  Company Number: US-SANOFI-AVENTIS-2013SA005599

PATIENT
  Age: 84 Year
  Sex: Female
  Weight: 59.1 kg

DRUGS (27)
  1. LASIX [Suspect]
     Indication: OEDEMA PERIPHERAL
     Route: 048
  2. INVESTIGATIONAL DRUG [Suspect]
     Indication: PLASMA CELL MYELOMA
     Route: 048
     Dates: start: 20120124, end: 20120207
  3. LENALIDOMIDE [Suspect]
     Indication: PLASMA CELL MYELOMA
     Route: 048
     Dates: start: 20120124, end: 20120206
  4. DEXAMETHASONE [Suspect]
     Indication: PLASMA CELL MYELOMA
     Route: 048
     Dates: start: 20120124, end: 20120207
  5. MICRO-K [Concomitant]
  6. ZOFRAN [Concomitant]
  7. ATIVAN [Concomitant]
  8. PHENERGAN [Concomitant]
  9. UNKNOWDRUG [Concomitant]
  10. PERCOCET [Concomitant]
  11. VALTREX [Concomitant]
  12. SENOKOT-S [Concomitant]
  13. HUMALOG [Concomitant]
  14. CALCIUM CARBONATE [Concomitant]
  15. COLACE [Concomitant]
  16. LANTUS [Concomitant]
  17. MULTIVITAMINS [Concomitant]
  18. ZINCATE [Concomitant]
  19. TYLENOL [Concomitant]
  20. DULCOLAX [Concomitant]
  21. ENULOSE [Concomitant]
  22. MAALOX [Concomitant]
  23. VITAMIN D [Concomitant]
  24. COUMADIN [Concomitant]
  25. PRINIVIL [Concomitant]
  26. DELTASONE [Concomitant]
  27. ASCORBIC ACID/CYANOCOBALAMIN/FERROUS FUMARATE/FOLIC ACID [Concomitant]

REACTIONS (6)
  - Dehydration [Recovered/Resolved]
  - Hyponatraemia [Recovered/Resolved]
  - Sudden hearing loss [Recovered/Resolved]
  - Hypotension [Recovered/Resolved]
  - Condition aggravated [Unknown]
  - Rash maculo-papular [Recovering/Resolving]
